FAERS Safety Report 6304163-2 (Version None)
Quarter: 2009Q3

REPORT INFORMATION
  Report Type: 
  Country: None (occurrence: None)
  Receive Date: 20090811
  Receipt Date: 20070504
  Transmission Date: 20100115
  Serious: Yes (Other)
  Sender: FDA-Public Use
  Company Number: US-ASTRAZENECA-2006UW11258

PATIENT
  Age: 17781 Day
  Sex: Female
  Weight: 71.7 kg

DRUGS (17)
  1. SEROQUEL [Suspect]
     Indication: DEPRESSION
     Route: 048
     Dates: start: 19970101
  2. SEROQUEL [Suspect]
     Indication: SLEEP DISORDER
     Route: 048
     Dates: start: 19970101
  3. SEROQUEL [Suspect]
     Dosage: 25-300 MG
     Route: 048
     Dates: start: 20020722
  4. SEROQUEL [Suspect]
     Dosage: 25-300 MG
     Route: 048
     Dates: start: 20020722
  5. ABILIFY [Concomitant]
  6. CLOZARIL [Concomitant]
  7. RISPERDAL [Concomitant]
     Dosage: 3-6 MG
     Route: 048
     Dates: start: 19940823
  8. SOLIAN [Concomitant]
  9. STELAZINE [Concomitant]
  10. THORAZINE [Concomitant]
  11. TRILAFON [Concomitant]
  12. ZYPREXA [Concomitant]
  13. KLONOPIN [Concomitant]
     Dosage: 1-2 MG
     Dates: start: 19940823
  14. HYDROCHLOROTHIAZIDE [Concomitant]
     Route: 048
     Dates: start: 19980506
  15. EFFEXOR [Concomitant]
     Dosage: 100-150 MG
     Route: 048
     Dates: start: 19970411
  16. DEPAKOTE [Concomitant]
     Route: 048
     Dates: start: 20020105
  17. SYNTHROID [Concomitant]
     Route: 048
     Dates: start: 20021111

REACTIONS (5)
  - DIABETES INSIPIDUS [None]
  - DIABETES MELLITUS [None]
  - HYPOGLYCAEMIA [None]
  - INTERVERTEBRAL DISC PROTRUSION [None]
  - TYPE 2 DIABETES MELLITUS [None]
